FAERS Safety Report 18473469 (Version 1)
Quarter: 2020Q4

REPORT INFORMATION
  Report Type: Spontaneous
  Country: US (occurrence: US)
  Receive Date: 20201106
  Receipt Date: 20201106
  Transmission Date: 20210114
  Serious: Yes (Other)
  Sender: FDA-Public Use
  Company Number: None

PATIENT
  Age: 75 Year
  Sex: Female

DRUGS (7)
  1. MONTELUKAST [Concomitant]
     Active Substance: MONTELUKAST SODIUM
  2. LASIX [Concomitant]
     Active Substance: FUROSEMIDE
  3. SYNTHROID [Concomitant]
     Active Substance: LEVOTHYROXINE SODIUM
  4. DALIRESP [Concomitant]
     Active Substance: ROFLUMILAST
  5. AMBRISENTAN [Suspect]
     Active Substance: AMBRISENTAN
  6. CARTIA [Concomitant]
  7. JARDIANCE [Concomitant]
     Active Substance: EMPAGLIFLOZIN

REACTIONS (2)
  - Atrial flutter [None]
  - Skin neoplasm excision [None]

NARRATIVE: CASE EVENT DATE: 20201023
